FAERS Safety Report 21678933 (Version 1)
Quarter: 2022Q4

REPORT INFORMATION
  Report Type: Report from Study
  Country: US (occurrence: US)
  Receive Date: 20221204
  Receipt Date: 20221204
  Transmission Date: 20230113
  Serious: No
  Sender: FDA-Public Use
  Company Number: US-ABBVIE-4178932

PATIENT
  Sex: Female

DRUGS (1)
  1. HUMIRA [Suspect]
     Active Substance: ADALIMUMAB
     Indication: Hidradenitis
     Dosage: 160MG DAY ONE
     Route: 058

REACTIONS (4)
  - Cough [Recovering/Resolving]
  - Headache [Recovering/Resolving]
  - Contusion [Unknown]
  - Arthropod sting [Unknown]
